FAERS Safety Report 25624582 (Version 1)
Quarter: 2025Q3

REPORT INFORMATION
  Report Type: Report from Study
  Country: MX (occurrence: MX)
  Receive Date: 20250730
  Receipt Date: 20250730
  Transmission Date: 20251021
  Serious: Yes (Death)
  Sender: ABBVIE
  Company Number: MX-ABBVIE-6393496

PATIENT
  Age: 57 Year
  Sex: Male

DRUGS (1)
  1. VENCLEXTA [Suspect]
     Active Substance: VENETOCLAX
     Indication: Chronic lymphocytic leukaemia
     Dosage: 200 MILLIGRAM?FORM STRENGTH: 100 MILLIGRAM?COATED TABLET
     Route: 048
     Dates: start: 20240622

REACTIONS (4)
  - Cardio-respiratory arrest [Fatal]
  - Asthenia [Recovered/Resolved]
  - Chronic lymphocytic leukaemia [Fatal]
  - Lymphadenitis [Not Recovered/Not Resolved]

NARRATIVE: CASE EVENT DATE: 20250501
